FAERS Safety Report 6877770-6 (Version None)
Quarter: 2010Q3

REPORT INFORMATION
  Report Type: 
  Country: None (occurrence: None)
  Receive Date: 20100727
  Receipt Date: 20100722
  Transmission Date: 20110219
  Serious: No
  Sender: FDA-Public Use
  Company Number: US-ABBOTT-10P-163-0658744-00

PATIENT
  Weight: 70.824 kg

DRUGS (2)
  1. SYNTHROID [Suspect]
     Indication: THYROID CANCER
     Route: 048
     Dates: start: 20100416
  2. SYNTHROID [Suspect]
     Route: 048
     Dates: start: 20091213, end: 20100415

REACTIONS (1)
  - ALOPECIA [None]
